FAERS Safety Report 20860909 (Version 1)
Quarter: 2022Q2

REPORT INFORMATION
  Report Type: Spontaneous
  Country: NZ (occurrence: None)
  Receive Date: 20220523
  Receipt Date: 20220523
  Transmission Date: 20220721
  Serious: Yes (Hospitalization, Other)
  Sender: FDA-Public Use
  Company Number: NZ-PFIZER INC-202200714272

PATIENT
  Age: 68 Year
  Sex: Female

DRUGS (2)
  1. METHOTREXATE [Suspect]
     Active Substance: METHOTREXATE
     Indication: Rheumatoid arthritis
     Route: 065
  2. ETANERCEPT [Suspect]
     Active Substance: ETANERCEPT
     Indication: Rheumatoid arthritis
     Route: 065

REACTIONS (11)
  - Ileal ulcer [Unknown]
  - Large intestinal ulcer [Unknown]
  - Faecal calprotectin increased [Unknown]
  - Abdominal pain [Unknown]
  - Diarrhoea [Unknown]
  - Enteritis [Unknown]
  - Abdominal pain upper [Unknown]
  - Vomiting [Unknown]
  - Small intestinal obstruction [Unknown]
  - Ovarian cancer metastatic [Unknown]
  - Weight decreased [Unknown]
